FAERS Safety Report 5625905-5 (Version None)
Quarter: 2008Q1

REPORT INFORMATION
  Report Type: 
  Country: None (occurrence: None)
  Receive Date: 20080213
  Receipt Date: 20080213
  Transmission Date: 20080703
  Serious: Yes (Life-Threatening, Hospitalization, Disabling)
  Sender: FDA-Public Use
  Company Number: None

PATIENT
  Sex: Female
  Weight: 131.5431 kg

DRUGS (1)
  1. ZITHROMAX [Suspect]
     Indication: PHARYNGITIS
     Dosage: REGULAR   5 TABS/1 PER DAY  PO
     Route: 048
     Dates: start: 20070309, end: 20070313

REACTIONS (9)
  - ALOPECIA [None]
  - EYE DISORDER [None]
  - LUNG DISORDER [None]
  - MUSCULAR WEAKNESS [None]
  - OESOPHAGEAL DISORDER [None]
  - ORAL DISORDER [None]
  - SKIN DISCOLOURATION [None]
  - SKIN LESION [None]
  - SWELLING [None]
